FAERS Safety Report 7173139-8 (Version None)
Quarter: 2010Q4

REPORT INFORMATION
  Report Type: 
  Country: None (occurrence: None)
  Receive Date: 20101219
  Receipt Date: 20100222
  Transmission Date: 20110411
  Serious: Yes (Hospitalization)
  Sender: FDA-Public Use
  Company Number: US-AMGEN-QUU394535

PATIENT

DRUGS (1)
  1. ENBREL [Suspect]
     Indication: PSORIASIS
     Dosage: 50 MG, 2 TIMES/WK
     Route: 058

REACTIONS (5)
  - DIPHTHERIA [None]
  - INJECTION SITE REACTION [None]
  - LYMPHANGITIS [None]
  - OTITIS EXTERNA [None]
  - SKIN INFECTION [None]
